FAERS Safety Report 6565249-0 (Version None)
Quarter: 2010Q1

REPORT INFORMATION
  Report Type: 
  Country: None (occurrence: None)
  Receive Date: 20100201
  Receipt Date: 20100122
  Transmission Date: 20100710
  Serious: Yes (Other)
  Sender: FDA-Public Use
  Company Number: US-ROCHE-677051

PATIENT
  Sex: Female
  Weight: 83.5 kg

DRUGS (9)
  1. AVASTIN [Suspect]
     Indication: BREAST CANCER
     Dosage: DISCONTINUED.
     Route: 042
     Dates: start: 20091110
  2. AVASTIN [Suspect]
     Dosage: THERAPY RESTARTED.
     Route: 042
     Dates: start: 20100106
  3. LIPITOR [Concomitant]
  4. METFORMIN HCL [Concomitant]
  5. DILANTIN [Concomitant]
     Dosage: FREQUENCY REPORTED AS: 300 QBS
  6. LANTUS [Concomitant]
     Dosage: REPORTED AS: 454 GD
  7. LISINOPRIL [Concomitant]
  8. COMPAZINE [Concomitant]
     Dosage: REPORTED AS 10 MG PM.
  9. CARBOPLATIN [Concomitant]

REACTIONS (1)
  - BILIARY DYSKINESIA [None]
